FAERS Safety Report 7845060-0 (Version None)
Quarter: 2011Q4

REPORT INFORMATION
  Report Type: 
  Country: None (occurrence: None)
  Receive Date: 20111025
  Receipt Date: 20111020
  Transmission Date: 20120403
  Serious: Yes (Hospitalization, Other)
  Sender: FDA-Public Use
  Company Number: GB-PFIZER INC-2011254800

PATIENT
  Age: 35 Year

DRUGS (4)
  1. MORPHINE SULFATE [Suspect]
  2. GABAPENTIN [Suspect]
  3. HYDROCORTISONE SODIUM SUCCINATE [Suspect]
  4. PROPOFOL [Suspect]

REACTIONS (2)
  - RENAL FAILURE ACUTE [None]
  - RHABDOMYOLYSIS [None]
